FAERS Safety Report 8567077-3 (Version None)
Quarter: 2012Q3

REPORT INFORMATION
  Report Type: 
  Country: None (occurrence: None)
  Receive Date: 20120730
  Receipt Date: 20120730
  Transmission Date: 20120928
  Serious: Yes (Life-Threatening)
  Sender: FDA-Public Use
  Company Number: None

PATIENT
  Age: 52 Year
  Sex: Female
  Weight: 65.7716 kg

DRUGS (2)
  1. HYDROCODONE BITARTRATE AND ACETAMINOPHEN [Suspect]
     Indication: TOOTH EXTRACTION
     Dosage: 1 EVERY 4 HOURS PO
     Route: 048
     Dates: start: 20120712, end: 20120715
  2. PENICILLIN VK [Suspect]
     Dosage: 1 EVERY 6 HOURS PO
     Route: 048

REACTIONS (8)
  - HYPERSOMNIA [None]
  - FATIGUE [None]
  - MIGRAINE [None]
  - MALAISE [None]
  - DECREASED APPETITE [None]
  - ABDOMINAL PAIN UPPER [None]
  - WRONG DRUG ADMINISTERED [None]
  - DRUG DISPENSING ERROR [None]
